FAERS Safety Report 20769770 (Version 2)
Quarter: 2022Q2

REPORT INFORMATION
  Report Type: Spontaneous
  Country: DE (occurrence: DE)
  Receive Date: 20220429
  Receipt Date: 20220514
  Transmission Date: 20220720
  Serious: Yes (Death, Hospitalization, Other)
  Sender: FDA-Public Use
  Company Number: DE-NOVARTISPH-NVSC2022DE098756

PATIENT
  Age: 69 Year
  Sex: Female
  Weight: 51 kg

DRUGS (6)
  1. CARBOPLATIN [Suspect]
     Active Substance: CARBOPLATIN
     Indication: Non-small cell lung cancer
     Dosage: FREQUENCY : ONCE
     Route: 042
     Dates: start: 20220216
  2. PACLITAXEL [Suspect]
     Active Substance: PACLITAXEL
     Indication: Product used for unknown indication
     Dosage: FREQUENCY : ONCE
     Route: 042
     Dates: start: 20220216
  3. OPDIVO [Suspect]
     Active Substance: NIVOLUMAB
     Indication: Non-small cell lung cancer
     Dosage: FREQUENCY : ONCE
     Route: 042
     Dates: start: 20220216
  4. YERVOY [Suspect]
     Active Substance: IPILIMUMAB
     Indication: Non-small cell lung cancer
     Dosage: FREQUENCY : ONCE
     Route: 042
     Dates: start: 20220216
  5. TORSEMIDE [Concomitant]
     Active Substance: TORSEMIDE
     Indication: Product used for unknown indication
     Dosage: UNK
     Route: 065
  6. FOLIC ACID [Concomitant]
     Active Substance: FOLIC ACID
     Indication: Prophylaxis
     Dosage: UNK
     Route: 065

REACTIONS (7)
  - Respiratory failure [Fatal]
  - Sepsis [Fatal]
  - Cardiovascular disorder [Fatal]
  - Renal failure [Fatal]
  - Malignant neoplasm progression [Unknown]
  - Hypotonia [Unknown]
  - General physical health deterioration [Unknown]

NARRATIVE: CASE EVENT DATE: 20220301
